FAERS Safety Report 21803235 (Version 1)
Quarter: 2023Q1

REPORT INFORMATION
  Report Type: Spontaneous
  Country: US (occurrence: US)
  Receive Date: 20230101
  Receipt Date: 20230101
  Transmission Date: 20230417
  Serious: Yes (Death)
  Sender: FDA-Public Use
  Company Number: US-JNJFOC-20221262641

PATIENT
  Sex: Female

DRUGS (1)
  1. INVOKAMET [Suspect]
     Active Substance: CANAGLIFLOZIN\METFORMIN HYDROCHLORIDE
     Indication: Product used for unknown indication
     Dosage: 150-1000MG
     Route: 048

REACTIONS (1)
  - Death [Fatal]
